FAERS Safety Report 6550471-X (Version None)
Quarter: 2010Q1

REPORT INFORMATION
  Report Type: 
  Country: None (occurrence: None)
  Receive Date: 20100125
  Receipt Date: 20100121
  Transmission Date: 20100710
  Serious: Yes (Other)
  Sender: FDA-Public Use
  Company Number: A0840725A

PATIENT
  Age: 58 Year
  Sex: Female

DRUGS (5)
  1. ADVAIR [Suspect]
     Indication: BRONCHITIS
     Dosage: 1PUFF TWICE PER DAY
     Route: 055
     Dates: start: 20100105, end: 20100107
  2. UNSPECIFIED MEDICATION [Concomitant]
  3. CELEXA [Concomitant]
  4. ESTRATEST [Concomitant]
  5. NEXIUM [Concomitant]

REACTIONS (2)
  - MYOCARDIAL INFARCTION [None]
  - SENSATION OF BLOOD FLOW [None]
